FAERS Safety Report 5491040-2 (Version None)
Quarter: 2007Q4

REPORT INFORMATION
  Report Type: 
  Country: None (occurrence: None)
  Receive Date: 20071019
  Receipt Date: 20071005
  Transmission Date: 20080405
  Serious: Yes (Death, Hospitalization)
  Sender: FDA-Public Use
  Company Number: JP-GENENTECH-229728

PATIENT
  Sex: Male
  Weight: 68 kg

DRUGS (7)
  1. BEVACIZUMAB [Suspect]
     Indication: COLORECTAL CANCER
     Dosage: 5 MG/KG, Q2W
     Route: 042
     Dates: start: 20051207, end: 20060801
  2. FLUOROURACIL [Suspect]
     Indication: COLORECTAL CANCER
     Dosage: 400 MG/ML, Q2W
     Route: 042
     Dates: start: 20051207, end: 20060802
  3. FLUOROURACIL [Suspect]
     Dosage: 600 MG/M2, Q2W
     Route: 041
     Dates: start: 20051207, end: 20060803
  4. LEUCOVORIN CALCIUM [Suspect]
     Indication: COLORECTAL CANCER
     Dosage: 100 MG/M2, Q2W
     Route: 042
     Dates: start: 20051207, end: 20060808
  5. OXALIPLATIN [Suspect]
     Indication: COLORECTAL CANCER METASTATIC
     Dosage: 85 MG/M2, Q2W
     Route: 042
     Dates: start: 20051207, end: 20060801
  6. MS CONTIN [Suspect]
     Indication: CANCER PAIN
     Dosage: 60 MG, UNK
     Dates: start: 20060107
  7. MORPHINE HCL ELIXIR [Suspect]
     Indication: CANCER PAIN
     Dosage: 10 MG, BID
     Dates: start: 20051130

REACTIONS (5)
  - ANOREXIA [None]
  - BLOOD PRESSURE INCREASED [None]
  - CONSTIPATION [None]
  - LYMPHANGIOSIS CARCINOMATOSA [None]
  - RENAL IMPAIRMENT [None]
